FAERS Safety Report 6647372-5 (Version None)
Quarter: 2010Q1

REPORT INFORMATION
  Report Type: 
  Country: None (occurrence: None)
  Receive Date: 20100322
  Receipt Date: 20100322
  Transmission Date: 20100710
  Serious: No
  Sender: FDA-Public Use
  Company Number: None

PATIENT
  Sex: Female
  Weight: 73.4827 kg

DRUGS (1)
  1. MIRENA [Suspect]
     Indication: CONTRACEPTION
     Dosage: LEVONORGESTREL -RELEASING INTRA INTRA-UTERINE
     Route: 015
     Dates: start: 20091109, end: 20100202

REACTIONS (2)
  - ARTHRALGIA [None]
  - JOINT CREPITATION [None]
